FAERS Safety Report 19429690 (Version 1)
Quarter: 2021Q2

REPORT INFORMATION
  Report Type: Spontaneous
  Country: US (occurrence: US)
  Receive Date: 20210617
  Receipt Date: 20210617
  Transmission Date: 20210717
  Serious: No
  Sender: FDA-Public Use
  Company Number: US-ORGANON-O2106USA001131

PATIENT
  Age: 36 Year
  Sex: Female
  Weight: 57.14 kg

DRUGS (3)
  1. NEXPLANON [Suspect]
     Active Substance: ETONOGESTREL
     Dosage: 1 IMPLANT ROD (UPPER INNER PART OF HER ARM)
     Route: 059
     Dates: end: 20210528
  2. NEXPLANON [Suspect]
     Active Substance: ETONOGESTREL
     Indication: CONTRACEPTION
     Dosage: 1 IMPLANT ROD (OUTSIDE BACK OF HER ARM)
     Route: 059
     Dates: start: 20210528
  3. NEXPLANON [Suspect]
     Active Substance: ETONOGESTREL
     Indication: CONTRACEPTION
     Dosage: 1 IMPLANT ROD (UPPER INNER PART OF HER ARM)
     Route: 059

REACTIONS (3)
  - Implant site pain [Unknown]
  - Device placement issue [Not Recovered/Not Resolved]
  - Incorrect product administration duration [Unknown]

NARRATIVE: CASE EVENT DATE: 2021
